FAERS Safety Report 5864089-5 (Version None)
Quarter: 2008Q3

REPORT INFORMATION
  Report Type: 
  Country: None (occurrence: None)
  Receive Date: 20080829
  Receipt Date: 20080820
  Transmission Date: 20090109
  Serious: Yes (Death, Other)
  Sender: FDA-Public Use
  Company Number: US-ROCHE-573646

PATIENT
  Sex: Female

DRUGS (5)
  1. KLONOPIN [Suspect]
     Indication: DRUG USE FOR UNKNOWN INDICATION
     Route: 048
     Dates: end: 20080101
  2. TRAZODONE HCL [Suspect]
     Indication: DRUG USE FOR UNKNOWN INDICATION
     Dosage: DOSE: 1 TABLET AT BEDTIME
     Route: 048
     Dates: end: 20080101
  3. LITHIUM CARBONATE [Suspect]
     Indication: DRUG USE FOR UNKNOWN INDICATION
     Route: 048
     Dates: end: 20080101
  4. KADIAN [Suspect]
     Indication: BACK PAIN
     Route: 048
     Dates: start: 20080424, end: 20080509
  5. PERCOCET [Suspect]
     Indication: PAIN
     Dosage: STRENGTH: 5MG/325MG
     Route: 048
     Dates: end: 20080101

REACTIONS (2)
  - DEATH [None]
  - SYNCOPE [None]
